FAERS Safety Report 5774851-5 (Version None)
Quarter: 2008Q2

REPORT INFORMATION
  Report Type: 
  Country: None (occurrence: None)
  Receive Date: 20080617
  Receipt Date: 20080605
  Transmission Date: 20081010
  Serious: Yes (Hospitalization)
  Sender: FDA-Public Use
  Company Number: JP-NOVOPROD-274754

PATIENT
  Age: 60 Year
  Sex: Female

DRUGS (6)
  1. NOVORAPID 30 MIX CHU FLEXPEN [Suspect]
     Indication: TYPE 2 DIABETES MELLITUS
     Route: 058
     Dates: end: 20080423
  2. AMARYL [Concomitant]
     Dosage: 2 MG, QD
     Route: 048
  3. BASEN [Concomitant]
     Dosage: .6 MG, QD
     Route: 048
     Dates: end: 20080423
  4. SIGMART [Concomitant]
     Dosage: 15 MG, QD
     Route: 048
  5. LIPITOR [Concomitant]
     Dosage: 10 MG, QD
     Route: 048
     Dates: end: 20080423
  6. ARIMIDEX [Concomitant]
     Dosage: 1 MG, QD
     Route: 048

REACTIONS (3)
  - ALANINE AMINOTRANSFERASE INCREASED [None]
  - ASPARTATE AMINOTRANSFERASE INCREASED [None]
  - LIVER FUNCTION TEST ABNORMAL [None]
